FAERS Safety Report 16736742 (Version 1)
Quarter: 2019Q3

REPORT INFORMATION
  Report Type: Report from Study
  Country: CN (occurrence: CN)
  Receive Date: 20190823
  Receipt Date: 20190823
  Transmission Date: 20191005
  Serious: Yes (Death, Other)
  Sender: FDA-Public Use
  Company Number: CN-ROCHE-2015820

PATIENT
  Sex: Female
  Weight: 60 kg

DRUGS (1)
  1. AVASTIN [Suspect]
     Active Substance: BEVACIZUMAB
     Indication: RECTAL CANCER
     Route: 041
     Dates: start: 20170531

REACTIONS (9)
  - Diarrhoea [Unknown]
  - Intestinal ulcer [Unknown]
  - Pollakiuria [Unknown]
  - Pain [Unknown]
  - Bedridden [Unknown]
  - Asthenia [Unknown]
  - Death [Fatal]
  - Abdominal distension [Unknown]
  - Frequent bowel movements [Unknown]
